FAERS Safety Report 23830320 (Version 1)
Quarter: 2024Q2

REPORT INFORMATION
  Report Type: Spontaneous
  Country: PL (occurrence: PL)
  Receive Date: 20240508
  Receipt Date: 20240508
  Transmission Date: 20240716
  Serious: Yes (Death, Hospitalization, Other)
  Sender: FDA-Public Use
  Company Number: None

PATIENT
  Age: 80 Year
  Sex: Female
  Weight: 69 kg

DRUGS (6)
  1. YERVOY [Suspect]
     Active Substance: IPILIMUMAB
     Indication: Lung neoplasm malignant
     Route: 042
     Dates: start: 20230926, end: 20240220
  2. OPDIVO [Suspect]
     Active Substance: NIVOLUMAB
     Indication: Lung neoplasm malignant
     Route: 042
     Dates: start: 20230926, end: 20240220
  3. PANTOPRAZOLE SODIUM [Concomitant]
     Active Substance: PANTOPRAZOLE SODIUM
     Indication: Product used for unknown indication
  4. ROSUVASTATIN [Concomitant]
     Active Substance: ROSUVASTATIN
     Indication: Product used for unknown indication
  5. AMLODIPINE BESYLATE\PERINDOPRIL ARGININE [Concomitant]
     Active Substance: AMLODIPINE BESYLATE\PERINDOPRIL ARGININE
     Indication: Product used for unknown indication
     Dosage: 10 MG + 10 MG TABLET
  6. LEVOTHYROXINE SODIUM [Concomitant]
     Active Substance: LEVOTHYROXINE SODIUM
     Indication: Product used for unknown indication

REACTIONS (12)
  - Respiratory failure [Fatal]
  - Carditis [Fatal]
  - Colitis [Recovered/Resolved]
  - Neutrophil count abnormal [Fatal]
  - Troponin increased [Fatal]
  - N-terminal prohormone brain natriuretic peptide increased [Fatal]
  - Diarrhoea [Recovered/Resolved]
  - Pneumocystis jirovecii infection [Fatal]
  - Pulmonary embolism [Fatal]
  - Immune-mediated lung disease [Fatal]
  - Agranulocytosis [Fatal]
  - Off label use [Unknown]

NARRATIVE: CASE EVENT DATE: 20240224
